FAERS Safety Report 4920975-1 (Version None)
Quarter: 2006Q1

REPORT INFORMATION
  Report Type: 
  Country: None (occurrence: None)
  Receive Date: 20060223
  Receipt Date: 20050202
  Transmission Date: 20060701
  Serious: Yes (Hospitalization)
  Sender: FDA-Public Use
  Company Number: US-MERCK-0502USA00365

PATIENT
  Age: 72 Year
  Sex: Male
  Weight: 81 kg

DRUGS (4)
  1. VIOXX [Suspect]
     Indication: SCIATICA
     Route: 048
     Dates: start: 20000101, end: 20041002
  2. VIOXX [Suspect]
     Indication: PAIN IN EXTREMITY
     Route: 048
     Dates: start: 20000101, end: 20041002
  3. UNIVASC [Concomitant]
     Route: 065
  4. NORVASC [Concomitant]
     Route: 065

REACTIONS (10)
  - ABDOMINAL PAIN UPPER [None]
  - ANAEMIA [None]
  - ARTERIOSCLEROSIS [None]
  - CEREBRAL INFARCTION [None]
  - CEREBROVASCULAR ACCIDENT [None]
  - EMBOLISM [None]
  - LUMBAR RADICULOPATHY [None]
  - PERIPHERAL MOTOR NEUROPATHY [None]
  - POLYNEUROPATHY [None]
  - TRANSIENT ISCHAEMIC ATTACK [None]
